FAERS Safety Report 7060786-7 (Version None)
Quarter: 2010Q4

REPORT INFORMATION
  Report Type: 
  Country: None (occurrence: None)
  Receive Date: 20101025
  Receipt Date: 20101013
  Transmission Date: 20110411
  Serious: Yes (Hospitalization, Other)
  Sender: FDA-Public Use
  Company Number: US-WATSON-2010-13789

PATIENT
  Age: 28 Year
  Sex: Male

DRUGS (2)
  1. FUROSEMIDE (WATSON LABORATORIES) [Suspect]
     Indication: CARDIOMYOPATHY
     Dosage: 40 MG, DAILY
     Route: 065
  2. LINCOMYCIN HYDROCHLORIDE (WATSON LABORATORIES) [Suspect]
     Indication: BACTERIAL INFECTION
     Dosage: UNK

REACTIONS (1)
  - STEVENS-JOHNSON SYNDROME [None]
